FAERS Safety Report 17338949 (Version 1)
Quarter: 2020Q1

REPORT INFORMATION
  Report Type: Spontaneous
  Country: CA (occurrence: CA)
  Receive Date: 20200129
  Receipt Date: 20200129
  Transmission Date: 20200409
  Serious: Yes (Hospitalization, Other)
  Sender: FDA-Public Use
  Company Number: CA-PFIZER INC-2020034849

PATIENT
  Sex: Female

DRUGS (7)
  1. HUMIRA [Suspect]
     Active Substance: ADALIMUMAB
     Dosage: 40 DF, UNK
  2. RITUXAN [Suspect]
     Active Substance: RITUXIMAB
     Dosage: 1000 DF, UNK
  3. ENBREL [Suspect]
     Active Substance: ETANERCEPT
     Dosage: 50 DF, WEEKLY
  4. ORENCIA [Suspect]
     Active Substance: ABATACEPT
     Dosage: 125 DF, WEEKLY
     Route: 058
  5. ACTEMRA [Suspect]
     Active Substance: TOCILIZUMAB
     Dosage: 8 DF, UNK
     Route: 042
  6. APO-LEFLUNOMIDE [Suspect]
     Active Substance: LEFLUNOMIDE
     Dosage: 20 DF, UNK
  7. METHOTREXATE SODIUM. [Suspect]
     Active Substance: METHOTREXATE SODIUM
     Dosage: 20 DF, UNK

REACTIONS (4)
  - Hypersensitivity [Unknown]
  - Contraindicated product administered [Unknown]
  - Rheumatoid arthritis [Unknown]
  - Therapeutic product effect decreased [Unknown]
